FAERS Safety Report 7244090-X (Version None)
Quarter: 2011Q1

REPORT INFORMATION
  Report Type: 
  Country: None (occurrence: None)
  Receive Date: 20110119
  Receipt Date: 20110119
  Transmission Date: 20110831
  Serious: Yes (Life-Threatening, Hospitalization, Disabling, Other)
  Sender: FDA-Public Use
  Company Number: None

PATIENT
  Age: 60 Year
  Sex: Female
  Weight: 81.6475 kg

DRUGS (1)
  1. FOSAMAX [Suspect]
     Indication: OSTEOPENIA
     Dosage: 70MG 1 PER WEEK PO
     Route: 048
     Dates: start: 19991025, end: 20090315

REACTIONS (4)
  - FRUSTRATION [None]
  - LUMBAR VERTEBRAL FRACTURE [None]
  - FEMUR FRACTURE [None]
  - PAIN [None]
